FAERS Safety Report 8965416 (Version 2)
Quarter: 2013Q1

REPORT INFORMATION
  Report Type: Report from Study
  Country: US (occurrence: US)
  Receive Date: 20121213
  Receipt Date: 20130301
  Transmission Date: 20140127
  Serious: Yes (Other)
  Sender: FDA-Public Use
  Company Number: US-ASTELLAS-2012US012000

PATIENT
  Age: 73 Year
  Sex: Male
  Weight: 82 kg

DRUGS (18)
  1. OSI-906 [Suspect]
     Indication: NON-SMALL CELL LUNG CANCER
     Dosage: 150 MG, BID
     Route: 048
     Dates: start: 20120423, end: 20120506
  2. OSI-906 [Suspect]
     Dosage: 150 MG, BID
     Route: 048
  3. ERLOTINIB [Suspect]
     Indication: NON-SMALL CELL LUNG CANCER
     Dosage: 150 MG, UID/QD
     Route: 048
     Dates: start: 20120423, end: 20120506
  4. ERLOTINIB [Suspect]
     Dosage: 150 MG, UID/QD
     Route: 048
  5. ERLOTINIB [Suspect]
     Dosage: 100 MG, UID/QD
     Route: 048
     Dates: start: 20120608
  6. FLOMAX RELIEF MR [Concomitant]
     Indication: DYSURIA
     Dosage: 0.4 MG, UID/QD
     Route: 065
     Dates: start: 20101116
  7. OXYCODONE [Concomitant]
     Indication: PRODUCT USED FOR UNKNOWN INDICATION
     Dosage: 5 MG, PRN, Q 4 HRS
     Route: 065
  8. DOXYCYCLINE [Concomitant]
     Indication: RASH
     Dosage: 100 MG, UID/QD
     Route: 065
     Dates: start: 20120430
  9. ACLOVATE [Concomitant]
     Indication: RASH
     Dosage: 0.05 %, PRN
     Route: 065
     Dates: start: 20120430
  10. SIMVASTATIN [Concomitant]
     Indication: BLOOD CHOLESTEROL
     Dosage: 20 MG, UID/QD
     Route: 065
     Dates: start: 20120416
  11. LISINOPRIL AND HYDROCHLOROTHIAZIDE [Concomitant]
     Indication: BLOOD PRESSURE
     Dosage: 20/25 MG
     Route: 065
     Dates: start: 20120127
  12. METOPROLOL SUCCINATE [Concomitant]
     Indication: BLOOD PRESSURE
     Dosage: 50 MG, UID/QD
     Route: 065
     Dates: start: 20110805
  13. COUMADIN                           /00014802/ [Concomitant]
     Indication: PRODUCT USED FOR UNKNOWN INDICATION
     Dosage: 5 MG, UID/QD
     Route: 065
     Dates: start: 20110526
  14. AVODART [Concomitant]
     Indication: DYSURIA
     Dosage: 0.5 MG, UID/QD
     Route: 065
     Dates: start: 20101016
  15. NITROSTAT [Concomitant]
     Indication: PRODUCT USED FOR UNKNOWN INDICATION
     Dosage: 0.4 MG, PRN
     Route: 065
     Dates: start: 20100512
  16. VITAMIN B 12 [Concomitant]
     Indication: SUPPLEMENTATION THERAPY
     Dosage: 1 ML, MONTHLY
     Route: 065
     Dates: start: 20100205
  17. ZYRTEC [Concomitant]
     Indication: HYPERSENSITIVITY
     Dosage: 10 MG, UID/QD
     Route: 065
     Dates: start: 20060717
  18. ASPIRIN [Concomitant]
     Indication: CARDIAC DISORDER
     Dosage: 81 MG, UNKNOWN/D
     Route: 065
     Dates: start: 20060717

REACTIONS (3)
  - Hyponatraemia [Recovered/Resolved]
  - Aspartate aminotransferase increased [Recovered/Resolved]
  - Alanine aminotransferase increased [Recovered/Resolved]
